FAERS Safety Report 13664532 (Version 3)
Quarter: 2017Q3

REPORT INFORMATION
  Report Type: Report from Study
  Country: IT (occurrence: IT)
  Receive Date: 20170619
  Receipt Date: 20170705
  Transmission Date: 20171127
  Serious: Yes (Hospitalization)
  Sender: FDA-Public Use
  Company Number: IT-TEVA-778179ACC

PATIENT
  Age: 83 Year
  Sex: Female

DRUGS (5)
  1. EUTIROX - 25 MICROGRAMMI COMPRESSE [Concomitant]
     Active Substance: LEVOTHYROXINE SODIUM
     Indication: PRODUCT USED FOR UNKNOWN INDICATION
  2. OLANZAPINE. [Suspect]
     Active Substance: OLANZAPINE
     Indication: SENILE DEMENTIA
     Dosage: 2.5 MILLIGRAM DAILY;
     Route: 048
     Dates: start: 20170601, end: 20170603
  3. LYRICA [Concomitant]
     Active Substance: PREGABALIN
     Indication: PRODUCT USED FOR UNKNOWN INDICATION
  4. MATRIFEN - 12 MCG/ORA CEROTTI TRANSDERMICI - GRUNENTHAL ITALIA SRL [Suspect]
     Active Substance: FENTANYL
     Indication: PAIN
     Dosage: 12 UG CYCLICAL
     Route: 062
     Dates: start: 20170530, end: 20170603
  5. EN [Suspect]
     Active Substance: DELORAZEPAM
     Indication: PRODUCT USED FOR UNKNOWN INDICATION
     Dosage: 15 GTT DAILY;
     Route: 048

REACTIONS (2)
  - Neurological symptom [Not Recovered/Not Resolved]
  - Psychotic disorder [Not Recovered/Not Resolved]

NARRATIVE: CASE EVENT DATE: 20170603
